FAERS Safety Report 7584480-9 (Version None)
Quarter: 2011Q2

REPORT INFORMATION
  Report Type: 
  Country: None (occurrence: None)
  Receive Date: 20110630
  Receipt Date: 20110622
  Transmission Date: 20111010
  Serious: Yes (Hospitalization, Other)
  Sender: FDA-Public Use
  Company Number: DE-UCBSA-026223

PATIENT
  Sex: Male
  Weight: 81 kg

DRUGS (6)
  1. METHOTREXATE SODIUM [Concomitant]
     Indication: RHEUMATOID ARTHRITIS
     Dosage: AS NEEDED
     Route: 058
     Dates: start: 20100519
  2. CALCIGEN D [Concomitant]
     Dosage: VITAMIN D 400 IU
     Route: 048
     Dates: start: 20100316
  3. CALCIGEN D [Concomitant]
     Indication: OSTEOPOROSIS PROPHYLAXIS
     Dosage: CALCIUM 600 MG
     Route: 048
     Dates: start: 20100316
  4. LODOTRA [Concomitant]
     Indication: RHEUMATOID ARTHRITIS
     Route: 048
     Dates: start: 20100316
  5. CIMZIA [Suspect]
     Indication: RHEUMATOID ARTHRITIS
     Route: 058
     Dates: start: 20101007, end: 20101104
  6. FOLIC ACID [Concomitant]
     Indication: RHEUMATOID ARTHRITIS
     Dosage: AS NEEDED
     Route: 048
     Dates: start: 20100316

REACTIONS (2)
  - RED BLOOD CELL SEDIMENTATION RATE INCREASED [None]
  - HYPERSENSITIVITY [None]
